FAERS Safety Report 8558327-8 (Version None)
Quarter: 2012Q3

REPORT INFORMATION
  Report Type: 
  Country: None (occurrence: None)
  Receive Date: 20120727
  Receipt Date: 20120727
  Transmission Date: 20120928
  Serious: Yes (Hospitalization)
  Sender: FDA-Public Use
  Company Number: None

PATIENT
  Age: 91 Year
  Sex: Male
  Weight: 92.6 kg

DRUGS (6)
  1. AMLODIPINE [Concomitant]
  2. COUMADIN [Suspect]
     Indication: ATRIAL FIBRILLATION
     Dosage: 5 MG, QMWF, PO CHRONIC
     Route: 048
  3. COUMADIN [Suspect]
     Indication: ATRIAL FIBRILLATION
     Dosage: 2.5 MG, QTTHSS, PO CHRONIC
     Route: 048
  4. ASPIRIN [Suspect]
     Indication: ATRIAL FIBRILLATION
     Dosage: CHRONIC
  5. TELMISARTAN [Concomitant]
  6. CALCITRIOL [Concomitant]

REACTIONS (1)
  - UPPER GASTROINTESTINAL HAEMORRHAGE [None]
